FAERS Safety Report 9389803 (Version 1)
Quarter: 2013Q3

REPORT INFORMATION
  Report Type: Spontaneous
  Country: US (occurrence: US)
  Receive Date: 20130708
  Receipt Date: 20130708
  Transmission Date: 20140515
  Serious: No
  Sender: FDA-Public Use
  Company Number: US-AMGEN-USASP2013041786

PATIENT
  Age: 43 Year
  Sex: Female

DRUGS (2)
  1. ENBREL [Suspect]
     Indication: RHEUMATOID ARTHRITIS
     Dosage: 50 MG, QWK
     Route: 065
     Dates: start: 20080509
  2. METHOTREXATE [Concomitant]
     Dosage: 2.5 UNK, QWK (2.5 X 7  ONCE A WEEK)

REACTIONS (3)
  - Knee operation [Recovered/Resolved]
  - Pain [Recovered/Resolved]
  - Therapeutic response decreased [Recovered/Resolved]
